FAERS Safety Report 9744827 (Version 1)
Quarter: 2013Q4

REPORT INFORMATION
  Report Type: Report from Study
  Country: GR (occurrence: GR)
  Receive Date: 20131211
  Receipt Date: 20131211
  Transmission Date: 20140711
  Serious: Yes (Other)
  Sender: FDA-Public Use
  Company Number: GR-ROCHE-1311419

PATIENT
  Sex: Female

DRUGS (5)
  1. TRASTUZUMAB EMTANSINE [Suspect]
     Indication: BREAST CANCER METASTATIC
     Route: 065
     Dates: start: 20130925, end: 20131016
  2. TRASTUZUMAB EMTANSINE [Suspect]
     Route: 065
     Dates: start: 20131016
  3. LIPITOR [Concomitant]
     Route: 065
  4. EUTHYROX [Concomitant]
     Route: 065
  5. ZOLOFT [Concomitant]
     Route: 065

REACTIONS (2)
  - Hepatic enzyme increased [Unknown]
  - Enzyme level increased [Unknown]
